FAERS Safety Report 6792942-7 (Version None)
Quarter: 2010Q2

REPORT INFORMATION
  Report Type: 
  Country: None (occurrence: None)
  Receive Date: 20100624
  Receipt Date: 20081030
  Transmission Date: 20101027
  Serious: No
  Sender: FDA-Public Use
  Company Number: US-PFIZER INC-2008091619

PATIENT
  Sex: Female

DRUGS (3)
  1. GEODON [Suspect]
     Indication: ANXIETY
     Dates: start: 20080501
  2. GEODON [Suspect]
     Indication: DEPRESSION
  3. KLONOPIN [Concomitant]

REACTIONS (1)
  - DEPRESSION [None]
